FAERS Safety Report 9663763 (Version 2)
Quarter: 2013Q4

REPORT INFORMATION
  Report Type: Report from Study
  Country: CL (occurrence: CL)
  Receive Date: 20131101
  Receipt Date: 20131111
  Transmission Date: 20140711
  Serious: Yes (Hospitalization)
  Sender: FDA-Public Use
  Company Number: PHHY2013CL123142

PATIENT
  Sex: Male

DRUGS (2)
  1. LEPONEX [Suspect]
     Indication: SCHIZOAFFECTIVE DISORDER
     Dosage: 300 MG, DAILY
     Route: 048
  2. VALPROIC ACID [Concomitant]
     Indication: PARANOIA
     Dosage: 500 MG, DAILY

REACTIONS (1)
  - General physical health deterioration [Recovering/Resolving]
